FAERS Safety Report 9736306 (Version 1)
Quarter: 2013Q4

REPORT INFORMATION
  Report Type: Spontaneous
  Country: MX (occurrence: MX)
  Receive Date: 20131206
  Receipt Date: 20131206
  Transmission Date: 20140711
  Serious: Yes (Other)
  Sender: FDA-Public Use
  Company Number: MX-ROCHE-1310344

PATIENT
  Age: 50 Year
  Sex: 0

DRUGS (3)
  1. AVASTIN [Suspect]
     Indication: BREAST CANCER METASTATIC
     Route: 065
     Dates: start: 20091215, end: 20100413
  2. CARBOPLATIN [Concomitant]
     Indication: BREAST CANCER METASTATIC
     Route: 065
     Dates: start: 20091215, end: 20100413
  3. DOCETAXEL [Concomitant]
     Route: 065
     Dates: start: 20091215, end: 20100413

REACTIONS (1)
  - Toxicity to various agents [Unknown]
